FAERS Safety Report 8280832 (Version 5)
Quarter: 2014Q2

REPORT INFORMATION
  Report Type: Spontaneous
  Country: JP (occurrence: None)
  Receive Date: 20111202
  Receipt Date: 20140527
  Transmission Date: 20141212
  Serious: Yes (Hospitalization, Other)
  Sender: FDA-Public Use
  Company Number: 2009JP005556

PATIENT
  Age: 25 Year
  Sex: Female
  Weight: 46 kg

DRUGS (29)
  1. PROGRAF [Suspect]
     Indication: LUPUS NEPHRITIS
     Route: 048
     Dates: start: 20070822, end: 20080525
  2. MEDROL [Suspect]
     Indication: LUPUS NEPHRITIS
     Route: 048
     Dates: end: 20070824
  3. PANVITAN (VITAMINS NOS) [Concomitant]
  4. ALFAROL (ALFACALCIDOL) [Concomitant]
  5. GASTER [Concomitant]
  6. LOSARTAN POTASSIUM [Concomitant]
  7. PERSANTINE [Concomitant]
  8. ASPIRIN [Concomitant]
  9. ETHYL ICOSAPENTATE [Concomitant]
  10. BONALON (ALENDRONIC ACID) [Concomitant]
  11. VITAMIN K [Concomitant]
  12. SELBEX (TEPRENONE) [Concomitant]
  13. ENDOXAN (CYCLOPHOSPHAMIDE) [Concomitant]
  14. BENET (RISEDRONATE SODIUM) [Concomitant]
  15. TAKEPRON (LANSOPRAZOLE) [Concomitant]
  16. LOXONIN (LOXOPROFEN SODIUM) [Concomitant]
  17. PL GRAN. (CAFFEINE, PARACETAMOL, PROMETHAZINE METHYLENE DISALICYLATE, SALICYLAMIDE) [Concomitant]
  18. TALION (BEPOTASTINE BESILATE) [Concomitant]
  19. ISODINE GARGLE (POVIDONE-IODINE) [Concomitant]
  20. MEDICON (DEXTROMETHORPHAN HYDROBROMIDE) [Concomitant]
  21. CEFZON (CEFDINIR) CAPSULE [Concomitant]
  22. ASTOMIN (DIMEMORFAN) [Concomitant]
  23. STROCAIN (OXETACAINE) [Concomitant]
  24. FIBLAST (ASCORBIC ACID, HESPERIDIN METHYL CHALCONE, RUSCUS ACULEATUS) [Concomitant]
  25. GENTACIN (GENTAMICIN SULFATE) [Concomitant]
  26. U-PASTA (POVIDONE-IODINE, SUCROSE) [Concomitant]
  27. METHYCOBAL (MECOBALAMIN) [Concomitant]
  28. BIOFERMIN R (STREPTOCOCCUS FAECALIS) [Concomitant]
  29. CIPROXAN (CIPROFLOXACIN HYDROCHLORIDE) [Concomitant]

REACTIONS (21)
  - Osteoarthritis [None]
  - Headache [None]
  - Spinal compression fracture [None]
  - Glaucoma [None]
  - Upper respiratory tract inflammation [None]
  - Abdominal pain upper [None]
  - Pharyngitis [None]
  - Plantar fasciitis [None]
  - Urinary tract infection [None]
  - Infected skin ulcer [None]
  - Leiomyoma [None]
  - Spondylolisthesis [None]
  - Calculus urinary [None]
  - Neuropathy peripheral [None]
  - Gastroenteritis [None]
  - Community acquired infection [None]
  - Infection [None]
  - Nasopharyngitis [None]
  - Ota^s naevus [None]
  - Injury [None]
  - Infection susceptibility increased [None]
